FAERS Safety Report 11342238 (Version 2)
Quarter: 2015Q4

REPORT INFORMATION
  Report Type: Spontaneous
  Country: BR (occurrence: BR)
  Receive Date: 20150805
  Receipt Date: 20151113
  Transmission Date: 20160304
  Serious: Yes (Other)
  Sender: FDA-Public Use
  Company Number: BR-009507513-1508BRA001585

PATIENT
  Age: 7 Month
  Sex: Male
  Weight: 9.5 kg

DRUGS (7)
  1. CARBOCYSTEINE [Suspect]
     Active Substance: CARBOCYSTEINE
     Indication: INFLUENZA
  2. DICLOFENAC [Suspect]
     Active Substance: DICLOFENAC
     Indication: INFLUENZA
  3. DESLORATADINE. [Suspect]
     Active Substance: DESLORATADINE
     Indication: INFLUENZA
  4. HYDROXYZINE [Concomitant]
     Active Substance: HYDROXYZINE\HYDROXYZINE HYDROCHLORIDE
  5. ACETAMINOPHEN. [Suspect]
     Active Substance: ACETAMINOPHEN
  6. METHYLPREDNISOLONE. [Concomitant]
     Active Substance: METHYLPREDNISOLONE
  7. PREDNISOLONE. [Suspect]
     Active Substance: PREDNISOLONE
     Indication: INFLUENZA
     Route: 048

REACTIONS (1)
  - Acute haemorrhagic oedema of infancy [Recovered/Resolved]
